FAERS Safety Report 24213914 (Version 1)
Quarter: 2024Q3

REPORT INFORMATION
  Report Type: Spontaneous
  Country: US (occurrence: None)
  Receive Date: 20240814
  Receipt Date: 20240814
  Transmission Date: 20241017
  Serious: No
  Sender: Public
  Company Number: None

PATIENT
  Sex: Female

DRUGS (1)
  1. OZEMPIC [Suspect]
     Active Substance: SEMAGLUTIDE
     Indication: Binge eating

REACTIONS (6)
  - Muscular weakness [None]
  - Pain [None]
  - Drug effect less than expected [None]
  - Nausea [None]
  - Cold sweat [None]
  - Abdominal discomfort [None]

NARRATIVE: CASE EVENT DATE: 20240810
